FAERS Safety Report 15929957 (Version 1)
Quarter: 2019Q1

REPORT INFORMATION
  Report Type: Spontaneous
  Country: US (occurrence: US)
  Receive Date: 20190115
  Receipt Date: 20190115
  Transmission Date: 20190417
  Serious: No
  Sender: FDA-Public Use
  Company Number: None

PATIENT
  Age: 67 Year
  Sex: Female

DRUGS (1)
  1. IBRANCE [Suspect]
     Active Substance: PALBOCICLIB
     Indication: BREAST CANCER
     Dosage: ?          OTHER FREQUENCY:DAILY ON DAYS 1-21;OTHER ROUTE:PO (28 DAYS CYCLE)?
     Route: 048
     Dates: start: 20180731, end: 20190111

REACTIONS (1)
  - Fatigue [None]

NARRATIVE: CASE EVENT DATE: 20180731
